FAERS Safety Report 4264746-0 (Version None)
Quarter: 2004Q1

REPORT INFORMATION
  Report Type: 
  Country: None (occurrence: None)
  Receive Date: 20040105
  Receipt Date: 20031219
  Transmission Date: 20041129
  Serious: Yes (Hospitalization)
  Sender: FDA-Public Use
  Company Number: STA-AE-03-MTX-209

PATIENT
  Age: 21 Year
  Sex: Female

DRUGS (2)
  1. METHOTREXATE [Suspect]
     Indication: ABORTION INDUCED
     Dosage: 50 MG/M^2 1 X PER 1 CYCLE
  2. MISOPROSTOL [Suspect]
     Indication: ABORTION INDUCED
     Dosage: 800 UG 1X PER 1 CYCLE

REACTIONS (10)
  - AMNIOCENTESIS ABNORMAL [None]
  - BREECH PRESENTATION [None]
  - CAESAREAN SECTION [None]
  - COMPLICATIONS OF MATERNAL EXPOSURE TO THERAPEUTIC DRUGS [None]
  - DRUG INEFFECTIVE [None]
  - INDUCED ABORTION FAILED [None]
  - PREMATURE LABOUR [None]
  - PREMATURE RUPTURE OF MEMBRANES [None]
  - PREMATURE SEPARATION OF PLACENTA [None]
  - VAGINAL HAEMORRHAGE [None]
